FAERS Safety Report 14986129 (Version 1)
Quarter: 2018Q2

REPORT INFORMATION
  Report Type: Spontaneous
  Country: JP (occurrence: JP)
  Receive Date: 20180607
  Receipt Date: 20180607
  Transmission Date: 20180711
  Serious: Yes (Death)
  Sender: FDA-Public Use
  Company Number: JP-MITSUBISHI TANABE PHARMA CORPORATION-MTPC2018-0005619

PATIENT
  Age: 77 Year
  Sex: Male
  Weight: 58 kg

DRUGS (11)
  1. CANAGLU [Suspect]
     Active Substance: CANAGLIFLOZIN
     Indication: DIABETES MELLITUS
     Route: 048
     Dates: start: 20180211, end: 20180222
  2. SEIBULE [Suspect]
     Active Substance: MIGLITOL
     Indication: DIABETES MELLITUS
     Route: 048
     Dates: end: 20180222
  3. GLIMEPIRIDE OD [Suspect]
     Active Substance: GLIMEPIRIDE
     Indication: DIABETES MELLITUS
     Route: 048
     Dates: start: 20180215, end: 20180222
  4. URIEF [Suspect]
     Active Substance: SILODOSIN
     Indication: NEUROGENIC BLADDER
     Route: 048
     Dates: start: 20180215, end: 20180222
  5. GLIMEPIRIDE. [Concomitant]
     Active Substance: GLIMEPIRIDE
     Indication: DIABETES MELLITUS
     Route: 048
     Dates: end: 20180214
  6. NILVADIPINE [Concomitant]
     Active Substance: NILVADIPINE
     Indication: HYPERTENSION
     Route: 048
     Dates: end: 20180222
  7. TENELIA [Suspect]
     Active Substance: TENELIGLIPTIN
     Indication: DIABETES MELLITUS
     Route: 048
     Dates: start: 20180209, end: 20180222
  8. APIDRA [Concomitant]
     Active Substance: INSULIN GLULISINE
     Indication: HYPERGLYCAEMIA
     Dosage: SUBCUTANEOUS INJECTION BASED ON THE SCALE IN PROPORTION TO BLOOD GLUCOSE
     Route: 058
     Dates: start: 20180213, end: 20180222
  9. CILOSTAZOL OD [Suspect]
     Active Substance: CILOSTAZOL
     Indication: CEREBRAL INFARCTION
     Route: 048
     Dates: start: 20180203, end: 20180222
  10. OZAGREL NA [Concomitant]
     Route: 041
     Dates: start: 20180202, end: 20180215
  11. RADICUT [Suspect]
     Active Substance: EDARAVONE
     Route: 041
     Dates: start: 20180202, end: 20180215

REACTIONS (9)
  - Renal impairment [Fatal]
  - Septic shock [Fatal]
  - Cerebral infarction [None]
  - Diabetes mellitus inadequate control [None]
  - Acute kidney injury [Fatal]
  - Hyperglycaemia [None]
  - Pneumonia aspiration [Fatal]
  - Dehydration [Fatal]
  - Cardio-respiratory arrest [None]

NARRATIVE: CASE EVENT DATE: 20180220
